FAERS Safety Report 20825119 (Version 2)
Quarter: 2022Q2

REPORT INFORMATION
  Report Type: Spontaneous
  Country: BR (occurrence: BR)
  Receive Date: 20220513
  Receipt Date: 20220630
  Transmission Date: 20220720
  Serious: Yes (Hospitalization, Other)
  Sender: FDA-Public Use
  Company Number: BR-BAXTER-2022BAX009801

PATIENT
  Age: 16 Year
  Sex: Female

DRUGS (2)
  1. IRON [Suspect]
     Active Substance: IRON
     Indication: Iron deficiency
     Dosage: ENDOVENOUS ROUTE, 2 AMPOULES TWICE
     Route: 042
     Dates: start: 20220426
  2. ONDANSETRON [Suspect]
     Active Substance: ONDANSETRON
     Indication: Product used for unknown indication
     Route: 065

REACTIONS (7)
  - Pallor [Recovered/Resolved]
  - Paraesthesia [Recovered/Resolved]
  - Nausea [Recovered/Resolved]
  - Vomiting [Recovered/Resolved]
  - Hyperhidrosis [Recovered/Resolved]
  - Hypotension [Unknown]
  - Loss of consciousness [Unknown]

NARRATIVE: CASE EVENT DATE: 20220426
